FAERS Safety Report 10796254 (Version 1)
Quarter: 2015Q1

REPORT INFORMATION
  Report Type: Report from Study
  Country: FR (occurrence: FR)
  Receive Date: 20150216
  Receipt Date: 20150216
  Transmission Date: 20150721
  Serious: Yes (Other)
  Sender: FDA-Public Use
  Company Number: FR-ROCHE-1536097

PATIENT

DRUGS (9)
  1. ARACYTINE [Suspect]
     Active Substance: CYTARABINE
     Indication: MANTLE CELL LYMPHOMA REFRACTORY
     Route: 065
  2. RITUXIMAB [Suspect]
     Active Substance: RITUXIMAB
     Indication: MANTLE CELL LYMPHOMA REFRACTORY
     Route: 065
  3. VINCRISTINE [Suspect]
     Active Substance: VINCRISTINE
     Indication: MANTLE CELL LYMPHOMA REFRACTORY
     Route: 065
  4. TEMSIROLIMUS [Suspect]
     Active Substance: TEMSIROLIMUS
     Indication: MANTLE CELL LYMPHOMA REFRACTORY
     Dosage: (ADMINISTRATED AT D2, 8 AND 15) WERE AS FOLLOWED: 25MG LEVEL 1; 50MG LEVEL 2 AND 75MG LEVEL 3 AND 15
     Route: 065
  5. DEXAMETHASONE. [Suspect]
     Active Substance: DEXAMETHASONE
     Indication: MANTLE CELL LYMPHOMA REFRACTORY
     Route: 065
  6. CYCLOPHOSPHAMIDE. [Suspect]
     Active Substance: CYCLOPHOSPHAMIDE
     Indication: MANTLE CELL LYMPHOMA REFRACTORY
     Route: 065
  7. DOXORUBICIN [Suspect]
     Active Substance: DOXORUBICIN
     Indication: MANTLE CELL LYMPHOMA REFRACTORY
     Route: 065
  8. FLUDARABINE [Suspect]
     Active Substance: FLUDARABINE PHOSPHATE
     Indication: MANTLE CELL LYMPHOMA REFRACTORY
     Route: 065
  9. PREDNISOLONE. [Suspect]
     Active Substance: PREDNISOLONE
     Indication: MANTLE CELL LYMPHOMA REFRACTORY
     Route: 065

REACTIONS (4)
  - Lymphopenia [Unknown]
  - Gastrointestinal haemorrhage [Unknown]
  - Leukopenia [Unknown]
  - Thrombocytopenia [Unknown]
